FAERS Safety Report 6139718-1 (Version None)
Quarter: 2009Q1

REPORT INFORMATION
  Report Type: 
  Country: None (occurrence: None)
  Receive Date: 20090330
  Receipt Date: 20080728
  Transmission Date: 20090719
  Serious: Yes (Other)
  Sender: FDA-Public Use
  Company Number: 8035233

PATIENT
  Sex: Male

DRUGS (3)
  1. LORTAB [Suspect]
     Indication: BACK INJURY
  2. OXYCONTIN [Suspect]
  3. XANAX [Suspect]

REACTIONS (1)
  - DRUG ABUSE [None]
